FAERS Safety Report 14632038 (Version 1)
Quarter: 2018Q1

REPORT INFORMATION
  Report Type: Spontaneous
  Country: JP (occurrence: JP)
  Receive Date: 20180313
  Receipt Date: 20180313
  Transmission Date: 20180509
  Serious: Yes (Other)
  Sender: FDA-Public Use
  Company Number: JP-PFIZER INC-2018087332

PATIENT

DRUGS (1)
  1. SELARA 100MG [Suspect]
     Active Substance: EPLERENONE
     Indication: PRIMARY HYPERALDOSTERONISM
     Dosage: UNK
     Route: 048

REACTIONS (2)
  - Blood potassium decreased [Unknown]
  - Blood pressure inadequately controlled [Unknown]
